FAERS Safety Report 20018088 (Version 2)
Quarter: 2022Q1

REPORT INFORMATION
  Report Type: Spontaneous
  Country: US (occurrence: US)
  Receive Date: 20211101
  Receipt Date: 20220103
  Transmission Date: 20220423
  Serious: No
  Sender: FDA-Public Use
  Company Number: US-SA-SAC20211027000224

PATIENT
  Sex: Female

DRUGS (6)
  1. DUPIXENT [Suspect]
     Active Substance: DUPILUMAB
     Indication: Dermatitis atopic
     Dosage: 300 MG, QOW
     Route: 058
     Dates: start: 20210810
  2. ESTRADIOL [Concomitant]
     Active Substance: ESTRADIOL
     Dosage: 0.5 MG
  3. EUCRISA [Concomitant]
     Active Substance: CRISABOROLE
     Dosage: 05 MG
  4. LINZESS [Concomitant]
     Active Substance: LINACLOTIDE
     Dosage: 145 MG
  5. PROTOPIC [Concomitant]
     Active Substance: TACROLIMUS
     Dosage: 10 MG
  6. SOLFENACIN [Concomitant]
     Dosage: 10 MG

REACTIONS (4)
  - Dermatitis atopic [Recovering/Resolving]
  - Condition aggravated [Unknown]
  - Product dose omission issue [Unknown]
  - Product use issue [Unknown]
